FAERS Safety Report 4275131-X (Version None)
Quarter: 2004Q1

REPORT INFORMATION
  Report Type: 
  Country: None (occurrence: None)
  Receive Date: 20040116
  Receipt Date: 20040113
  Transmission Date: 20041129
  Serious: Yes (Life-Threatening)
  Sender: FDA-Public Use
  Company Number: 2004193986FR

PATIENT
  Age: 57 Year
  Sex: Male

DRUGS (1)
  1. CAMPTOSAR [Suspect]
     Dosage: 550 MG, IV
     Route: 042
     Dates: start: 20031117, end: 20031117

REACTIONS (1)
  - FEBRILE BONE MARROW APLASIA [None]
